FAERS Safety Report 10250730 (Version 1)
Quarter: 2014Q2

REPORT INFORMATION
  Report Type: Spontaneous
  Country: CN (occurrence: CN)
  Receive Date: 20140620
  Receipt Date: 20140620
  Transmission Date: 20141212
  Serious: No
  Sender: FDA-Public Use
  Company Number: CN-ELI_LILLY_AND_COMPANY-CN201406006026

PATIENT
  Age: 22 Year
  Sex: Male
  Weight: 66 kg

DRUGS (2)
  1. ZYPREXA [Suspect]
     Indication: BIPOLAR DISORDER
     Dosage: 15MG, ONCE DAILY
     Route: 048
     Dates: start: 20130805, end: 20131211
  2. CHLORPROMAZINE HYDROCHLORIDE [Suspect]
     Indication: BIPOLAR DISORDER
     Dosage: 175MG, TWICE DAILY
     Dates: start: 20130805, end: 20131211

REACTIONS (6)
  - White blood cell count decreased [Recovering/Resolving]
  - Alanine aminotransferase increased [Recovering/Resolving]
  - Aspartate aminotransferase increased [Recovering/Resolving]
  - Blood prolactin increased [Recovering/Resolving]
  - Restlessness [Recovering/Resolving]
  - Resting tremor [Recovering/Resolving]
